FAERS Safety Report 18376743 (Version 1)
Quarter: 2020Q4

REPORT INFORMATION
  Report Type: Spontaneous
  Country: CA (occurrence: CA)
  Receive Date: 20201013
  Receipt Date: 20201013
  Transmission Date: 20210114
  Serious: Yes (Life-Threatening, Hospitalization, Other)
  Sender: FDA-Public Use
  Company Number: CA-MACLEODS PHARMACEUTICALS US LTD-MAC2020028356

PATIENT

DRUGS (17)
  1. TEMAZEPAM. [Suspect]
     Active Substance: TEMAZEPAM
     Indication: NEURALGIA
     Dosage: UNK
     Route: 065
  2. KETAMINE [Interacting]
     Active Substance: KETAMINE
     Dosage: 0.5 MILLIGRAM/KILOGRAM, HIGH DOSE, 30 HR OVER FIVE DAYS; 8:00 AM TO 2:00 PM EACH DAY
     Route: 040
  3. KETAMINE [Interacting]
     Active Substance: KETAMINE
     Dosage: 0.5 MILLIGRAM/KILOGRAM, Q.H., HIGH DOSE, 30 HR OVER FIVE DAYS; 8:00 AM TO 2:00 PM EACH DAY
     Route: 042
  4. MAGNESIUM SULFATE. [Concomitant]
     Active Substance: MAGNESIUM SULFATE
     Dosage: 50 MILLIGRAM/KILOGRAM, BOLUS
     Route: 065
  5. MAGNESIUM SULFATE. [Concomitant]
     Active Substance: MAGNESIUM SULFATE
     Indication: ANALGESIC THERAPY
     Dosage: 50 MILLIGRAM/KILOGRAM, BOLUS
     Route: 065
  6. DEXAMETHASONE. [Concomitant]
     Active Substance: DEXAMETHASONE
     Indication: PROPHYLAXIS
     Dosage: UNK
     Route: 042
  7. AMITRIPTYLLINE [Suspect]
     Active Substance: AMITRIPTYLINE
     Indication: NEURALGIA
     Dosage: UNK
     Route: 065
  8. DRONABINOL. [Interacting]
     Active Substance: DRONABINOL
     Indication: ANALGESIC THERAPY
     Dosage: 0.3 GRAM, Q.W.
     Route: 065
  9. MIDAZOLAM. [Suspect]
     Active Substance: MIDAZOLAM
     Indication: PROPHYLAXIS
     Dosage: UNK
     Route: 042
  10. KETAMINE [Interacting]
     Active Substance: KETAMINE
     Indication: NEURALGIA
     Dosage: 1.6 MILLIGRAM/KILOGRAM, Q.H., HIGH DOSE, 30 HR OVER FIVE DAYS; 8:00 AM TO 2:00 PM EACH DAY
     Route: 042
  11. ZOPICLONE [Suspect]
     Active Substance: ZOPICLONE
     Indication: NEURALGIA
     Dosage: UNK
     Route: 065
  12. LIDOCAINE. [Concomitant]
     Active Substance: LIDOCAINE
     Indication: ANALGESIC THERAPY
     Dosage: 5 MILLIGRAM/KILOGRAM, BOLUS
     Route: 065
  13. CANNABIDIOL [Interacting]
     Active Substance: CANNABIDIOL
     Indication: NEURALGIA
     Dosage: UNK, VAPORIZED OIL
     Route: 065
  14. ONDANSETRON [Concomitant]
     Active Substance: ONDANSETRON
     Indication: PROPHYLAXIS
     Dosage: UNK
     Route: 042
  15. DULOXETINE. [Suspect]
     Active Substance: DULOXETINE
     Indication: NEURALGIA
     Dosage: UNK
     Route: 065
  16. MAGNESIUM SULFATE. [Concomitant]
     Active Substance: MAGNESIUM SULFATE
     Dosage: 15 MILLIGRAM/KILOGRAM, Q.H., INFUSION
     Route: 065
  17. DRONABINOL. [Interacting]
     Active Substance: DRONABINOL
     Dosage: UNK, VAPORIZED THC USE (TWO-THREE TIMES HIS USUAL DOSE)
     Route: 065

REACTIONS (3)
  - Drug level increased [Recovered/Resolved]
  - Drug interaction [Recovered/Resolved]
  - Behaviour disorder [Recovered/Resolved]
